FAERS Safety Report 8388251-5 (Version None)
Quarter: 2012Q2

REPORT INFORMATION
  Report Type: 
  Country: None (occurrence: None)
  Receive Date: 20120525
  Receipt Date: 20120516
  Transmission Date: 20120825
  Serious: Yes (Hospitalization)
  Sender: FDA-Public Use
  Company Number: BR-ASTRAZENECA-2012SE28066

PATIENT
  Age: 61 Year
  Sex: Male
  Weight: 31.8 kg

DRUGS (13)
  1. NEBIVOLOL HCL [Concomitant]
     Route: 048
  2. CRESTOR [Suspect]
     Route: 048
     Dates: start: 20100101, end: 20120401
  3. RANITIDINE [Concomitant]
     Indication: GASTRITIS PROPHYLAXIS
     Route: 048
  4. CRESTOR [Suspect]
     Indication: BLOOD CHOLESTEROL INCREASED
     Route: 048
     Dates: start: 20070101, end: 20070101
  5. CRESTOR [Suspect]
     Route: 048
     Dates: start: 20070101, end: 20100101
  6. CRESTOR [Suspect]
     Route: 048
     Dates: start: 20120401
  7. VASTAREL [Concomitant]
     Route: 048
  8. EZETIMIBE [Concomitant]
     Route: 048
  9. ASPIRIN [Concomitant]
     Route: 048
  10. CITALOPRAM HYDROBROMIDE [Concomitant]
     Route: 048
  11. PROCOLARAN [Concomitant]
     Route: 048
  12. LIPILESS [Concomitant]
     Route: 048
  13. ALPRAZOLAM [Concomitant]
     Route: 048

REACTIONS (5)
  - ARTERIAL OCCLUSIVE DISEASE [None]
  - BLOOD CHOLESTEROL INCREASED [None]
  - INTENTIONAL DRUG MISUSE [None]
  - DRUG INEFFECTIVE [None]
  - MYOCARDIAL INFARCTION [None]
